FAERS Safety Report 4465981-9 (Version None)
Quarter: 2004Q3

REPORT INFORMATION
  Report Type: 
  Country: None (occurrence: None)
  Receive Date: 20040930
  Receipt Date: 20040917
  Transmission Date: 20050211
  Serious: Yes (Death)
  Sender: FDA-Public Use
  Company Number: 209114

PATIENT
  Age: 39 Year
  Sex: Male
  Weight: 55 kg

DRUGS (10)
  1. MABTHERA (RITUXIMAB) CONC FOR SOLUTION FOR INFUSION [Suspect]
     Indication: WEGENER'S GRANULOMATOSIS
     Dosage: INTRAVENOUS
     Route: 042
     Dates: start: 20040901
  2. FRAXIPARIN (HEPARIN CALCIUM) [Concomitant]
  3. AMLOR (AMLODIPINE BESYLATE) [Concomitant]
  4. EMCONCOR (BISOPROLOL FUMARATE) [Concomitant]
  5. MEDROL [Concomitant]
  6. OMEPRAZOLE [Concomitant]
  7. CA-ACETAT (CALCIUM ACETATE) [Concomitant]
  8. MOLSIDOMINE (MOLSIDOMINE) [Concomitant]
  9. EUSAPRIM (SULFAMETHOXAZOLE, TRIMETHOPRIM) [Concomitant]
  10. RENAGEL [Concomitant]

REACTIONS (23)
  - ABDOMINAL PAIN [None]
  - ABDOMINAL PAIN UPPER [None]
  - ACIDOSIS [None]
  - ADENOMA BENIGN [None]
  - ATRIAL FIBRILLATION [None]
  - BLOOD BICARBONATE DECREASED [None]
  - BLOOD PARATHYROID HORMONE INCREASED [None]
  - BLOOD SODIUM DECREASED [None]
  - CARDIAC ARREST [None]
  - CYANOSIS [None]
  - GASTRIC DISORDER [None]
  - HAEMOGLOBIN DECREASED [None]
  - HEPATOMEGALY [None]
  - HYPERKALAEMIA [None]
  - NEUTROPHIL PERCENTAGE INCREASED [None]
  - PERIPHERAL EMBOLISM [None]
  - PLATELET COUNT DECREASED [None]
  - SHOCK [None]
  - SUDDEN DEATH [None]
  - TACHYARRHYTHMIA [None]
  - TACHYPNOEA [None]
  - VOMITING [None]
  - WHITE BLOOD CELL COUNT INCREASED [None]
